FAERS Safety Report 9342879 (Version 1)
Quarter: 2013Q2

REPORT INFORMATION
  Report Type: Spontaneous
  Country: GB (occurrence: GB)
  Receive Date: 20130611
  Receipt Date: 20130611
  Transmission Date: 20140414
  Serious: Yes (Other)
  Sender: FDA-Public Use
  Company Number: GB-GLAXOSMITHKLINE-B0887129A

PATIENT
  Age: 9 Year
  Sex: Female

DRUGS (2)
  1. SERETIDE [Suspect]
     Indication: ASTHMA
     Dosage: 125MCG TWICE PER DAY
     Route: 065
     Dates: start: 20050524
  2. DEXAMETHASONE [Concomitant]
     Indication: ASTHMA

REACTIONS (1)
  - Addison^s disease [Unknown]
